FAERS Safety Report 5193161-0 (Version None)
Quarter: 2006Q4

REPORT INFORMATION
  Report Type: 
  Country: None (occurrence: None)
  Receive Date: 20061228
  Receipt Date: 20060609
  Transmission Date: 20070319
  Serious: No
  Sender: FDA-Public Use
  Company Number: US-GLAXOSMITHKLINE-A0608499A

PATIENT
  Age: 85 Year
  Sex: Male

DRUGS (19)
  1. AVODART [Suspect]
     Dosage: .5MG PER DAY
     Route: 048
     Dates: start: 20050101
  2. FLOMAX [Concomitant]
  3. NITROGLYCERIN [Concomitant]
  4. DIGOXIN [Concomitant]
  5. ZESTORETIC [Concomitant]
  6. NORVASC [Concomitant]
  7. FUROSEMIDE [Concomitant]
  8. POTASSIUM CHLORIDE [Concomitant]
  9. CELEBREX [Concomitant]
  10. COUMADIN [Concomitant]
  11. PROBENECID [Concomitant]
  12. COLCHICINE [Concomitant]
  13. LAXATIVE [Concomitant]
  14. GLUCOSAMINE [Concomitant]
  15. CHONDROITIN [Concomitant]
  16. MULTI-VITAMIN [Concomitant]
  17. ASCORBIC ACID [Concomitant]
  18. CALCIUM CITRATE [Concomitant]
  19. ACETAMINOPHEN [Concomitant]

REACTIONS (2)
  - DRUG INEFFECTIVE [None]
  - URINE FLOW DECREASED [None]
